FAERS Safety Report 5423956-7 (Version None)
Quarter: 2007Q3

REPORT INFORMATION
  Report Type: 
  Country: None (occurrence: None)
  Receive Date: 20070823
  Receipt Date: 20070810
  Transmission Date: 20080115
  Serious: Yes (Hospitalization, Other)
  Sender: FDA-Public Use
  Company Number: US-ELI_LILLY_AND_COMPANY-US200708002435

PATIENT
  Sex: Female

DRUGS (26)
  1. CYMBALTA [Suspect]
     Indication: DEPRESSION
     Dosage: 60 MG, UNK
     Route: 048
  2. INSULIN [Concomitant]
  3. TYLENOL /USA/ [Concomitant]
     Dosage: 650 MG, UNK
  4. DUONEB [Concomitant]
     Indication: WHEEZING
  5. DULCOLAX [Concomitant]
     Indication: CONSTIPATION
  6. CLONIDINE [Concomitant]
     Indication: BLOOD PRESSURE
  7. COLACE [Concomitant]
     Indication: CONSTIPATION
  8. SENOKOT [Concomitant]
     Indication: CONSTIPATION
  9. LOVENOX [Concomitant]
     Indication: THROMBOSIS PROPHYLAXIS
  10. NEXIUM [Concomitant]
     Indication: PROPHYLAXIS AGAINST GASTROINTESTINAL ULCER
  11. IRON [Concomitant]
     Indication: ANAEMIA
  12. NEURONTIN [Concomitant]
     Indication: NEURALGIA
  13. HYDRALAZINE HCL [Concomitant]
     Indication: BLOOD PRESSURE
  14. LABETALOL HCL [Concomitant]
     Indication: BLOOD PRESSURE
  15. MILK OF MAGNESIA [Concomitant]
     Indication: CONSTIPATION
  16. REGLAN [Concomitant]
     Indication: VOMITING
  17. MORPHINE [Concomitant]
     Indication: PAIN
  18. NYSTATIN [Concomitant]
     Indication: GROIN INFECTION
     Route: 061
  19. ZYPREXA [Concomitant]
     Indication: AGITATION
  20. ZOFRAN [Concomitant]
     Indication: VOMITING
     Dosage: UNK, AS NEEDED
  21. MIRALAX [Concomitant]
     Indication: CONSTIPATION
  22. COMPAZINE /00013304/ [Concomitant]
     Indication: VOMITING
  23. ZANAFLEX [Concomitant]
     Indication: MUSCLE SPASMS
  24. VANCOMYCIN [Concomitant]
     Indication: WOUND INFECTION
  25. AMBIEN [Concomitant]
     Indication: SLEEP DISORDER
  26. EFFEXOR [Concomitant]
     Indication: DEPRESSION

REACTIONS (2)
  - TRACHEOSTOMY [None]
  - WOUND INFECTION [None]
